FAERS Safety Report 12928284 (Version 2)
Quarter: 2019Q4

REPORT INFORMATION
  Report Type: Spontaneous
  Country: US (occurrence: US)
  Receive Date: 20161110
  Receipt Date: 20191209
  Transmission Date: 20200122
  Serious: Yes (Other)
  Sender: FDA-Public Use
  Company Number: US-UCBSA-2016042061

PATIENT
  Age: 58 Year
  Sex: Female

DRUGS (1)
  1. CIMZIA [Suspect]
     Active Substance: CERTOLIZUMAB PEGOL
     Indication: PRODUCT USED FOR UNKNOWN INDICATION
     Dosage: 400 MG, EV 4 WEEKS

REACTIONS (11)
  - Tremor [Unknown]
  - Eyelid ptosis [Unknown]
  - Blister [Unknown]
  - Chills [Unknown]
  - Psoriasis [Unknown]
  - Urticaria [Unknown]
  - Amnesia [Unknown]
  - Diplopia [Unknown]
  - Feeling abnormal [Unknown]
  - Nausea [Unknown]
  - Paraesthesia [Unknown]
